FAERS Safety Report 6191559-5 (Version None)
Quarter: 2009Q2

REPORT INFORMATION
  Report Type: 
  Country: None (occurrence: None)
  Receive Date: 20090515
  Receipt Date: 20090512
  Transmission Date: 20091009
  Serious: Yes (Hospitalization)
  Sender: FDA-Public Use
  Company Number: JP-BAYER-200910765BYL

PATIENT
  Age: 60 Year
  Sex: Male
  Weight: 65 kg

DRUGS (3)
  1. NEXAVAR [Suspect]
     Indication: RENAL CELL CARCINOMA STAGE IV
     Dosage: UNIT DOSE: 200 MG
     Route: 048
     Dates: start: 20080430, end: 20090126
  2. HOCHUEKKITOU [Concomitant]
     Route: 048
     Dates: start: 20070430
  3. TAGAMET [Concomitant]
     Route: 048
     Dates: start: 20080430

REACTIONS (8)
  - ALOPECIA [None]
  - BLOOD AMYLASE INCREASED [None]
  - HYPERTENSION [None]
  - LIPASE INCREASED [None]
  - PAIN IN EXTREMITY [None]
  - PALMAR-PLANTAR ERYTHRODYSAESTHESIA SYNDROME [None]
  - PLEURAL EFFUSION [None]
  - RASH [None]
